FAERS Safety Report 13977122 (Version 1)
Quarter: 2017Q3

REPORT INFORMATION
  Report Type: Spontaneous
  Country: US (occurrence: US)
  Receive Date: 20170915
  Receipt Date: 20170915
  Transmission Date: 20171128
  Serious: Yes (Hospitalization)
  Sender: FDA-Public Use
  Company Number: US-TAIHO ONCOLOGY INC-EU-2017-01219

PATIENT
  Age: 69 Year
  Sex: Female
  Weight: 83.08 kg

DRUGS (1)
  1. LONSURF [Suspect]
     Active Substance: TIPIRACIL HYDROCHLORIDE\TRIFLURIDINE
     Indication: COLON CANCER
     Dosage: CYCLE 1
     Route: 048
     Dates: start: 20170821, end: 2017

REACTIONS (2)
  - Acute kidney injury [Unknown]
  - Liver injury [Unknown]

NARRATIVE: CASE EVENT DATE: 201708
